FAERS Safety Report 5615186-0 (Version None)
Quarter: 2008Q1

REPORT INFORMATION
  Report Type: 
  Country: None (occurrence: None)
  Receive Date: 20080206
  Receipt Date: 20080131
  Transmission Date: 20080703
  Serious: Yes (Other)
  Sender: FDA-Public Use
  Company Number: PHEH2008US00941

PATIENT
  Age: 60 Year
  Sex: Male
  Weight: 68.18 kg

DRUGS (6)
  1. CHANTIX [Suspect]
     Indication: SMOKING CESSATION THERAPY
     Dosage: 0.5 MG, QD
     Route: 065
     Dates: start: 20070101
  2. CHANTIX [Suspect]
     Dosage: 0.5 MG, BID
     Route: 065
  3. CHANTIX [Suspect]
     Dosage: 1 MG, BID
     Route: 065
  4. DIOVAN [Suspect]
     Dosage: 80 MG, QD
     Route: 065
  5. HMG COA REDUCTASE INHIBITORS [Suspect]
     Route: 065
  6. GEMFIBROZIL [Suspect]
     Route: 065

REACTIONS (8)
  - BRADYCARDIA [None]
  - DIZZINESS [None]
  - DRUG INTERACTION [None]
  - ELECTROCARDIOGRAM ABNORMAL [None]
  - HYPERHIDROSIS [None]
  - HYPOTENSION [None]
  - MUSCLE DISORDER [None]
  - MYOCARDIAL INFARCTION [None]
